FAERS Safety Report 11337875 (Version 1)
Quarter: 2015Q3

REPORT INFORMATION
  Report Type: Spontaneous
  Country: US (occurrence: US)
  Receive Date: 20150803
  Receipt Date: 20150803
  Transmission Date: 20151125
  Serious: No
  Sender: FDA-Public Use
  Company Number: US-ELI_LILLY_AND_COMPANY-US201002003250

PATIENT
  Age: 47 Year
  Sex: Male

DRUGS (5)
  1. FLUOXETINE [Concomitant]
     Active Substance: FLUOXETINE\FLUOXETINE HYDROCHLORIDE
  2. VENLAFAXINE [Concomitant]
     Active Substance: VENLAFAXINE HYDROCHLORIDE
     Indication: DEPRESSION
     Dosage: 70 MG, DAILY (1/D)
  3. FINASTERIDE. [Concomitant]
     Active Substance: FINASTERIDE
     Dosage: 1.25 D/F, DAILY (1/D)
  4. ZYPREXA [Suspect]
     Active Substance: OLANZAPINE
     Indication: DEPRESSION
     Dosage: 2.5 MG, DAILY (1/D)
     Dates: start: 2009
  5. ZYPREXA [Suspect]
     Active Substance: OLANZAPINE
     Dosage: 2.5 MG, DAILY (1/D)
     Dates: start: 20100118

REACTIONS (4)
  - Feeling abnormal [Not Recovered/Not Resolved]
  - Musculoskeletal stiffness [Not Recovered/Not Resolved]
  - Musculoskeletal stiffness [Unknown]
  - Muscle rigidity [Not Recovered/Not Resolved]

NARRATIVE: CASE EVENT DATE: 2009
